FAERS Safety Report 10008752 (Version 2)
Quarter: 2014Q1

REPORT INFORMATION
  Report Type: Spontaneous
  Country: US (occurrence: US)
  Receive Date: 20140312
  Receipt Date: 20140312
  Transmission Date: 20141002
  Serious: No
  Sender: FDA-Public Use
  Company Number: US-INCYTE CORPORATION-2012IN000423

PATIENT
  Age: 74 Year
  Sex: Female
  Weight: 61.22 kg

DRUGS (15)
  1. JAKAFI [Suspect]
     Indication: MYELOFIBROSIS
     Dosage: 10 MG, BID
     Route: 048
     Dates: start: 20120113, end: 20120330
  2. JAKAFI [Suspect]
     Dosage: 10 MG, QD
     Route: 048
     Dates: start: 20120330, end: 20120411
  3. JAKAFI [Suspect]
     Dosage: 10 MG, QOD
     Route: 048
     Dates: start: 20120412
  4. JAKAFI [Suspect]
     Dosage: 5 MG, QOD
     Route: 048
  5. VICODIN [Concomitant]
     Dosage: 7.5-750
     Route: 048
  6. PANTOPRAZOLE [Concomitant]
     Dosage: 20 MG, UNK
     Route: 048
  7. LOSARTAN [Concomitant]
  8. SOTALOL HCL [Concomitant]
     Dosage: 120 MG, UNK
     Route: 048
  9. WARFARIN [Concomitant]
     Dosage: 1 MG, UNK
     Route: 048
  10. MAGNESIUM [Concomitant]
     Dosage: 200 MG, UNK
     Route: 048
  11. MULTIVITAMIN [Concomitant]
  12. LEVOXYL [Concomitant]
     Dosage: 125 MCG, UNK
     Route: 048
  13. AMBIEN [Concomitant]
  14. CALCIUM WITH VITAMIN D [Concomitant]
  15. LOSARTAN POTASSICO [Concomitant]
     Dosage: 25 BQ, UNK
     Route: 048

REACTIONS (5)
  - Vision blurred [Recovered/Resolved]
  - Nausea [Recovered/Resolved]
  - Fatigue [Recovered/Resolved]
  - Dizziness [Recovered/Resolved]
  - Anaemia [Recovered/Resolved]
